FAERS Safety Report 5852519-4 (Version None)
Quarter: 2008Q3

REPORT INFORMATION
  Report Type: 
  Country: None (occurrence: None)
  Receive Date: 20080820
  Receipt Date: 20080820
  Transmission Date: 20090109
  Serious: Yes (Other)
  Sender: FDA-Public Use
  Company Number: None

PATIENT
  Sex: Female
  Weight: 72.5755 kg

DRUGS (1)
  1. DEMEROL [Suspect]
     Indication: TOOTHACHE
     Dosage: 150 MG. Q4H PO
     Route: 048
     Dates: start: 20080619, end: 20080621

REACTIONS (5)
  - DISORIENTATION [None]
  - FEELING JITTERY [None]
  - HYPOAESTHESIA [None]
  - PARAESTHESIA [None]
  - PHARMACEUTICAL PRODUCT COMPLAINT [None]
